FAERS Safety Report 6264079-7 (Version None)
Quarter: 2009Q3

REPORT INFORMATION
  Report Type: 
  Country: None (occurrence: None)
  Receive Date: 20090710
  Receipt Date: 20090701
  Transmission Date: 20100115
  Serious: No
  Sender: FDA-Public Use
  Company Number: US-ABBOTT-09P-163-0579602-00

PATIENT
  Sex: Male

DRUGS (20)
  1. VICODIN [Suspect]
     Indication: PAIN
     Dates: start: 20090220, end: 20090424
  2. VICODIN [Suspect]
     Indication: POST-THORACOTOMY PAIN SYNDROME
  3. CELEXA [Suspect]
     Indication: POST-TRAUMATIC STRESS DISORDER
     Route: 048
     Dates: start: 20070301, end: 20090423
  4. CELEXA [Suspect]
     Indication: DEPRESSION
     Route: 048
     Dates: start: 20090424, end: 20090430
  5. CELEXA [Suspect]
     Indication: SUICIDAL IDEATION
     Route: 048
     Dates: start: 20090501, end: 20090507
  6. CELEXA [Suspect]
     Route: 048
     Dates: start: 20090508, end: 20090514
  7. DILAUDID [Suspect]
     Indication: PAIN
     Dates: start: 20090220, end: 20090424
  8. DILAUDID [Suspect]
     Indication: POST-THORACOTOMY PAIN SYNDROME
  9. NEURONTIN [Suspect]
     Indication: PAIN
     Dates: start: 20090220, end: 20090424
  10. NEURONTIN [Suspect]
     Indication: POST-THORACOTOMY PAIN SYNDROME
  11. METOPROLOL TARTRATE [Suspect]
     Indication: HYPERTENSION
     Dates: start: 20030101, end: 20081001
  12. TRAMADOL [Suspect]
     Indication: BACK PAIN
     Dates: start: 20081001, end: 20090424
  13. XANAX [Concomitant]
     Indication: ANXIETY
     Dates: start: 20070301
  14. ATIVAN [Concomitant]
     Indication: ANXIETY
     Dates: start: 20070501
  15. CLONAZEPAM [Concomitant]
     Indication: ANXIETY
     Route: 048
     Dates: start: 20070601
  16. LISINOPRIL [Concomitant]
     Indication: HYPERTENSION
     Dates: start: 20060808
  17. ACTOS [Concomitant]
     Indication: DRUG USE FOR UNKNOWN INDICATION
  18. ALLOPURINOL [Concomitant]
     Indication: GOUT
     Route: 048
  19. PRAVACHOL [Concomitant]
     Indication: DRUG USE FOR UNKNOWN INDICATION
  20. IBUPROFEN [Concomitant]
     Indication: POST-THORACOTOMY PAIN SYNDROME
     Route: 048
     Dates: start: 20090301

REACTIONS (7)
  - DISORIENTATION [None]
  - DIZZINESS [None]
  - HYPOTENSION [None]
  - LOSS OF CONSCIOUSNESS [None]
  - MENTAL STATUS CHANGES [None]
  - OBSESSIVE-COMPULSIVE PERSONALITY DISORDER [None]
  - POST-THORACOTOMY PAIN SYNDROME [None]
